FAERS Safety Report 5394959-6 (Version None)
Quarter: 2007Q3

REPORT INFORMATION
  Report Type: 
  Country: None (occurrence: None)
  Receive Date: 20070724
  Receipt Date: 20070719
  Transmission Date: 20080115
  Serious: Yes (Hospitalization)
  Sender: FDA-Public Use
  Company Number: PHBS2007BR12170

PATIENT
  Age: 66 Year
  Sex: Male
  Weight: 68 kg

DRUGS (2)
  1. EYE DROPS [Concomitant]
  2. GALVUS MET [Suspect]
     Indication: DIABETES MELLITUS
     Dosage: 1 DF, BID
     Route: 048

REACTIONS (5)
  - BLINDNESS [None]
  - DIABETES MELLITUS INADEQUATE CONTROL [None]
  - EYE OPERATION [None]
  - PANOPHTHALMITIS [None]
  - RETINAL DETACHMENT [None]
